FAERS Safety Report 6658058 (Version 3)
Quarter: 2014Q3

REPORT INFORMATION
  Report Type: Spontaneous
  Country: CA (occurrence: CA)
  Receive Date: 20080605
  Receipt Date: 20140812
  Transmission Date: 20150326
  Serious: Yes (Disabling, Other)
  Sender: FDA-Public Use
  Company Number: PHHY2008CA09330

PATIENT
  Age: 68 Year
  Sex: Male
  Weight: 99.77 kg

DRUGS (5)
  1. LEUPROLIDE//LEUPRORELIN ACETATE [Concomitant]
     Dosage: UNK UKN, UNK
  2. ALTACE [Concomitant]
     Active Substance: RAMIPRIL
     Dosage: UNK UKN, UNK
  3. ZOMETA [Suspect]
     Active Substance: ZOLEDRONIC ACID
     Indication: METASTASES TO BONE
     Dosage: 4 MG/DAY
     Route: 042
     Dates: start: 20080909
  4. LEUPRON PED - SLOW RELEASE [Concomitant]
     Dosage: UNK UKN, UNK
  5. CASODEX [Concomitant]
     Active Substance: BICALUTAMIDE
     Dosage: UNK UKN, UNK

REACTIONS (6)
  - Ocular hyperaemia [Not Recovered/Not Resolved]
  - Osteonecrosis of jaw [Not Recovered/Not Resolved]
  - Eye pain [Not Recovered/Not Resolved]
  - Optic ischaemic neuropathy [Not Recovered/Not Resolved]
  - Rash [Not Recovered/Not Resolved]
  - Blindness [Not Recovered/Not Resolved]

NARRATIVE: CASE EVENT DATE: 20080909
